FAERS Safety Report 4993989-3 (Version None)
Quarter: 2006Q2

REPORT INFORMATION
  Report Type: 
  Country: None (occurrence: None)
  Receive Date: 20060505
  Receipt Date: 20060504
  Transmission Date: 20061013
  Serious: Yes (Other)
  Sender: FDA-Public Use
  Company Number: FR-GLAXOSMITHKLINE-B0422667A

PATIENT
  Age: 28 Year
  Sex: Female

DRUGS (5)
  1. ZINNAT [Suspect]
     Indication: SINUSITIS
     Dosage: 250MG TWICE PER DAY
     Route: 048
     Dates: start: 20060401, end: 20060401
  2. FLUIMUCIL [Concomitant]
     Indication: SINUSITIS
     Route: 048
     Dates: start: 20060401
  3. ANTIINFLAMATORY [Concomitant]
     Indication: SINUSITIS
     Route: 065
     Dates: start: 20060401
  4. DETURGYLONE [Concomitant]
     Indication: SINUSITIS
  5. ACETAMINOPHEN [Concomitant]
     Indication: SINUSITIS

REACTIONS (2)
  - ALANINE AMINOTRANSFERASE INCREASED [None]
  - RED BLOOD CELL SEDIMENTATION RATE INCREASED [None]
